FAERS Safety Report 9082927 (Version 1)
Quarter: 2013Q1

REPORT INFORMATION
  Report Type: Report from Study
  Country: US (occurrence: US)
  Receive Date: 20130131
  Receipt Date: 20130131
  Transmission Date: 20140127
  Serious: No
  Sender: FDA-Public Use
  Company Number: US-ABBOTT-12P-163-0993723-00

PATIENT
  Sex: Male
  Weight: 124.85 kg

DRUGS (6)
  1. HUMIRA [Suspect]
     Indication: RHEUMATOID ARTHRITIS
     Dates: start: 201207
  2. METHOTREXATE [Suspect]
     Indication: RHEUMATOID ARTHRITIS
  3. RITALIN [Concomitant]
     Indication: ATTENTION DEFICIT/HYPERACTIVITY DISORDER
  4. SERAQUEL [Concomitant]
     Indication: SLEEP DISORDER
  5. LOMATRAGINE [Concomitant]
     Indication: ELEVATED MOOD
  6. FOLIC ACID [Concomitant]
     Indication: VITAMIN SUPPLEMENTATION

REACTIONS (2)
  - Pain [Not Recovered/Not Resolved]
  - Drug effect delayed [Not Recovered/Not Resolved]
